FAERS Safety Report 7780684-0 (Version None)
Quarter: 2011Q3

REPORT INFORMATION
  Report Type: 
  Country: None (occurrence: None)
  Receive Date: 20110927
  Receipt Date: 20110318
  Transmission Date: 20111222
  Serious: No
  Sender: FDA-Public Use
  Company Number: US-BRISTOL-MYERS SQUIBB COMPANY-15620925

PATIENT

DRUGS (1)
  1. AVAPRO [Suspect]
     Dosage: FOR A FEW YEARS

REACTIONS (2)
  - JOINT SWELLING [None]
  - DRUG INEFFECTIVE [None]
